FAERS Safety Report 19435743 (Version 1)
Quarter: 2021Q2

REPORT INFORMATION
  Report Type: Spontaneous
  Country: JP (occurrence: JP)
  Receive Date: 20210618
  Receipt Date: 20210618
  Transmission Date: 20210717
  Serious: Yes (Death, Other)
  Sender: FDA-Public Use
  Company Number: JP-STRIDES ARCOLAB LIMITED-2021SP006571

PATIENT
  Age: 85 Year
  Sex: Male

DRUGS (2)
  1. METHYLPREDNISOLONE. [Suspect]
     Active Substance: METHYLPREDNISOLONE
     Indication: PEMPHIGUS
     Dosage: 0.5 MILLIGRAM
     Route: 065
  2. PREDNISOLONE. [Suspect]
     Active Substance: PREDNISOLONE
     Indication: PEMPHIGUS
     Dosage: UNK
     Route: 065

REACTIONS (2)
  - Pneumonia cytomegaloviral [Fatal]
  - Cytomegalovirus infection reactivation [Unknown]
